FAERS Safety Report 9008281 (Version 1)
Quarter: 2013Q1

REPORT INFORMATION
  Report Type: Spontaneous
  Country: PT (occurrence: PT)
  Receive Date: 20130111
  Receipt Date: 20130111
  Transmission Date: 20140127
  Serious: Yes (Hospitalization)
  Sender: FDA-Public Use
  Company Number: PT-B.I. PHARMACEUTICALS,INC./RIDGEFIELD-2013-BI-00333PO

PATIENT
  Age: 84 Year
  Sex: Male
  Weight: 60 kg

DRUGS (9)
  1. PRADAXA [Suspect]
     Indication: ATRIAL FIBRILLATION
     Dosage: 220 MG
     Dates: start: 20120706
  2. PRADAXA [Suspect]
     Indication: ATRIOVENTRICULAR BLOCK FIRST DEGREE
  3. FLUOXETINE [Concomitant]
  4. AMLODIPINE + VALSARTAN ID [Concomitant]
     Dosage: ID
  5. AAS [Concomitant]
  6. PERIDOPRIL + INDAPAMIDE ID [Concomitant]
     Dosage: ID
  7. CLONAZEPAM [Concomitant]
  8. PANTOPRAZOLE [Concomitant]
  9. TAMSULOSIN ID [Concomitant]
     Dosage: ID

REACTIONS (5)
  - Melaena [Recovered/Resolved]
  - Iron deficiency anaemia [Unknown]
  - Gastrointestinal angiodysplasia [Unknown]
  - Mucosal atrophy [Unknown]
  - Mucosal hyperaemia [Unknown]
